FAERS Safety Report 20981101 (Version 1)
Quarter: 2022Q2

REPORT INFORMATION
  Report Type: Spontaneous
  Country: US (occurrence: US)
  Receive Date: 20220620
  Receipt Date: 20220620
  Transmission Date: 20220721
  Serious: Yes (Other)
  Sender: FDA-Public Use
  Company Number: US-PFIZER INC-PV202200005356

PATIENT
  Sex: Female

DRUGS (4)
  1. BOSULIF [Suspect]
     Active Substance: BOSUTINIB MONOHYDRATE
     Dosage: UNK
  2. SPRYCEL [Suspect]
     Active Substance: DASATINIB
     Dosage: UNK
  3. GLEEVEC [Suspect]
     Active Substance: IMATINIB MESYLATE
     Dosage: UNK
  4. TASIGNA [Suspect]
     Active Substance: NILOTINIB
     Dosage: UNK

REACTIONS (4)
  - Gastric bypass [Unknown]
  - Pancreatitis chronic [Unknown]
  - Diabetes mellitus [Unknown]
  - Hernia [Unknown]

NARRATIVE: CASE EVENT DATE: 20211101
